FAERS Safety Report 5310938-9 (Version None)
Quarter: 2007Q2

REPORT INFORMATION
  Report Type: 
  Country: None (occurrence: None)
  Receive Date: 20070426
  Receipt Date: 20070426
  Transmission Date: 20071010
  Serious: Yes (Other)
  Sender: FDA-Public Use
  Company Number: None

PATIENT
  Age: 54 Year
  Sex: Male
  Weight: 84.2 kg

DRUGS (11)
  1. OMNIPAQUE 140 [Suspect]
     Indication: COMPUTERISED TOMOGRAM
     Dosage: 140ML IV ONCE
     Route: 042
     Dates: start: 20060531
  2. OMNIPAQUE 140 [Suspect]
     Indication: COMPUTERISED TOMOGRAM
     Dosage: 140ML IV ONCE
     Route: 042
     Dates: start: 20061124
  3. VISIPAQUE [Suspect]
     Indication: COMPUTERISED TOMOGRAM
     Dosage: 140ML IV ONCE
     Route: 042
     Dates: start: 20060531
  4. VISIPAQUE [Suspect]
     Indication: COMPUTERISED TOMOGRAM
     Dosage: 140ML IV ONCE
     Route: 042
     Dates: start: 20061124
  5. AMITRIPTYLINE HCL [Concomitant]
  6. NAPROXEN [Concomitant]
  7. ACETAMINOPHEN [Concomitant]
  8. OXYCODONE / ACETAMINOPHEN [Concomitant]
  9. PSEUDOEPHEDRINE HCL [Concomitant]
  10. LORATADINE [Concomitant]
  11. FLUNISOLIDE [Concomitant]

REACTIONS (16)
  - ASTHENIA [None]
  - CHILLS [None]
  - COMPUTERISED TOMOGRAM ABNORMAL [None]
  - CONTRAST MEDIA ALLERGY [None]
  - DIZZINESS [None]
  - DRUG HYPERSENSITIVITY [None]
  - DRY SKIN [None]
  - EXCORIATION [None]
  - HEAT RASH [None]
  - HYPERHIDROSIS [None]
  - LYMPHADENOPATHY MEDIASTINAL [None]
  - MIGRAINE [None]
  - PERIODONTAL INFECTION [None]
  - PLANTAR FASCIITIS [None]
  - RASH ERYTHEMATOUS [None]
  - SKIN EXFOLIATION [None]
